FAERS Safety Report 21132882 (Version 2)
Quarter: 2022Q3

REPORT INFORMATION
  Report Type: Spontaneous
  Country: US (occurrence: US)
  Receive Date: 20220726
  Receipt Date: 20220819
  Transmission Date: 20221027
  Serious: No
  Sender: FDA-Public Use
  Company Number: US-Blueprint Medicines Corporation-279

PATIENT
  Age: 72 Year
  Sex: Female

DRUGS (1)
  1. AYVAKIT [Suspect]
     Active Substance: AVAPRITINIB
     Indication: Gastrointestinal stromal tumour
     Route: 048
     Dates: start: 20220619, end: 20220715

REACTIONS (9)
  - Fluid retention [Unknown]
  - Weight increased [Unknown]
  - Periorbital swelling [Unknown]
  - Swelling face [Unknown]
  - Peripheral swelling [Unknown]
  - COVID-19 [Unknown]
  - Body temperature increased [Unknown]
  - Throat irritation [Unknown]
  - Ocular hyperaemia [Recovering/Resolving]

NARRATIVE: CASE EVENT DATE: 20220715
